FAERS Safety Report 8614926-6 (Version None)
Quarter: 2012Q3

REPORT INFORMATION
  Report Type: 
  Country: None (occurrence: None)
  Receive Date: 20120823
  Receipt Date: 20120817
  Transmission Date: 20120928
  Serious: Yes (Hospitalization)
  Sender: FDA-Public Use
  Company Number: US-PERRIGO-12US004818

PATIENT
  Sex: Female
  Weight: 55.782 kg

DRUGS (9)
  1. FAMOTIDINE [Suspect]
     Indication: DYSPEPSIA
     Dosage: 1 TABLET, SINGLE
     Route: 048
     Dates: start: 20120403, end: 20120403
  2. PREMARIN [Concomitant]
     Indication: HOT FLUSH
     Dosage: 0.625 MG, QD
     Route: 048
  3. JANUVIA [Concomitant]
     Indication: DIABETES MELLITUS
     Dosage: UNK
     Route: 065
  4. MECLIZINE [Concomitant]
     Indication: DIZZINESS
     Dosage: 25MG TID PRN
     Route: 048
  5. GLIPIZIDE [Concomitant]
     Indication: DIABETES MELLITUS
     Dosage: UNK
     Route: 065
  6. MULTI-VITAMIN [Concomitant]
     Indication: PRODUCT USED FOR UNKNOWN INDICATION
     Dosage: 1 TABLET DAILY
     Route: 048
  7. COZAAR [Concomitant]
     Indication: HYPERTENSION
     Dosage: UNK
     Route: 065
  8. TRIAMTERENE AND HYDROCHLOROTHIAZIDE [Concomitant]
     Indication: BLOOD PRESSURE ABNORMAL
     Dosage: 1 CAPSULE DAILY
     Route: 048
  9. ACTOS [Concomitant]
     Indication: DIABETES MELLITUS
     Dosage: 15 MG, QOD
     Route: 048

REACTIONS (4)
  - BLOOD PRESSURE INCREASED [None]
  - NAUSEA [None]
  - DIZZINESS [None]
  - VOMITING [None]
